FAERS Safety Report 6082253-X (Version None)
Quarter: 2009Q1

REPORT INFORMATION
  Report Type: 
  Country: None (occurrence: None)
  Receive Date: 20090121
  Receipt Date: 20081217
  Transmission Date: 20090719
  Serious: Yes (Other)
  Sender: FDA-Public Use
  Company Number: AR_75/08

PATIENT
  Age: 11 Year
  Sex: Female

DRUGS (1)
  1. TECHNETIUM TC 99M MPI MDP [Suspect]
     Indication: RADIOTHERAPY
     Dosage: INTRAVENOUS
     Route: 042

REACTIONS (1)
  - UNEVALUABLE EVENT [None]
